FAERS Safety Report 4619996-8 (Version None)
Quarter: 2005Q1

REPORT INFORMATION
  Report Type: 
  Country: None (occurrence: None)
  Receive Date: 20050321
  Receipt Date: 20050321
  Transmission Date: 20050727
  Serious: No
  Sender: FDA-Public Use
  Company Number: None

PATIENT
  Sex: Male
  Weight: 102 kg

DRUGS (3)
  1. CYTARABINE [Suspect]
     Dosage: 100 MG/M2 /DAY BY CIV ON DAYS 1-7
     Route: 042
     Dates: start: 20050228, end: 20050306
  2. DAUNORUBICIN HCL [Suspect]
     Dosage: 60 MG/M2/DAY BY IVP ON DAYS 1-3
     Route: 042
     Dates: start: 20050228, end: 20050302
  3. PREDNISONE [Concomitant]

REACTIONS (15)
  - ANOXIA [None]
  - ATRIAL FIBRILLATION [None]
  - BRONCHOSCOPY ABNORMAL [None]
  - COMA [None]
  - COUGH [None]
  - FEBRILE NEUTROPENIA [None]
  - GASTROINTESTINAL DISORDER [None]
  - ISCHAEMIC HEPATITIS [None]
  - LUNG INFILTRATION [None]
  - MULTI-ORGAN FAILURE [None]
  - PULMONARY OEDEMA [None]
  - RENAL FAILURE ACUTE [None]
  - RESPIRATORY FAILURE [None]
  - SEPTIC SHOCK [None]
  - SYNCOPE VASOVAGAL [None]
